FAERS Safety Report 4494908-9 (Version None)
Quarter: 2004Q4

REPORT INFORMATION
  Report Type: 
  Country: None (occurrence: None)
  Receive Date: 20041103
  Receipt Date: 20041021
  Transmission Date: 20050328
  Serious: Yes (Life-Threatening, Hospitalization)
  Sender: FDA-Public Use
  Company Number: 200407697

PATIENT
  Age: 60 Year
  Sex: Female
  Weight: 52.1637 kg

DRUGS (4)
  1. BOTOX [Suspect]
     Indication: DYSTONIA
     Dosage: 460 UNITS ONCE IM
     Route: 030
  2. BOTOX [Suspect]
     Indication: DYSTONIA
     Dosage: 100 UNITS ONCE IM
     Route: 030
  3. ELAVIL [Concomitant]
  4. VALIUM [Concomitant]

REACTIONS (7)
  - CARDIAC FAILURE [None]
  - CARDIOMYOPATHY [None]
  - DRUG EFFECT DECREASED [None]
  - DYSPNOEA [None]
  - EJECTION FRACTION DECREASED [None]
  - HYPERSENSITIVITY [None]
  - VIRAL INFECTION [None]
